FAERS Safety Report 9220116 (Version 1)
Quarter: 2013Q2

REPORT INFORMATION
  Report Type: Spontaneous
  Country: US (occurrence: US)
  Receive Date: 20130409
  Receipt Date: 20130409
  Transmission Date: 20140414
  Serious: Yes (Hospitalization)
  Sender: FDA-Public Use
  Company Number: US-SANOFI-AVENTIS-2013SA035891

PATIENT
  Age: 69 Year
  Sex: Male

DRUGS (2)
  1. LOVENOX [Suspect]
     Indication: THROMBOSIS
     Dates: start: 20130120, end: 20130220
  2. ENOXAPARIN SODIUM [Concomitant]
     Route: 058
     Dates: start: 20130221, end: 20130224

REACTIONS (4)
  - Pneumonia [Recovering/Resolving]
  - Pulmonary embolism [Recovering/Resolving]
  - Thrombosis [Recovering/Resolving]
  - Surgery [Unknown]
